FAERS Safety Report 10247236 (Version 1)
Quarter: 2014Q2

REPORT INFORMATION
  Report Type: Spontaneous
  Country: US (occurrence: US)
  Receive Date: 20140619
  Receipt Date: 20140619
  Transmission Date: 20141212
  Serious: Yes (Hospitalization)
  Sender: FDA-Public Use
  Company Number: US-GLAXOSMITHKLINE-A1077119A

PATIENT
  Age: 69 Year
  Sex: Female

DRUGS (9)
  1. ADVAIR [Suspect]
     Indication: DYSPNOEA
     Dosage: 1PUFF TWICE PER DAY
     Route: 055
     Dates: start: 1999
  2. HUMALOG MIX [Concomitant]
  3. METFORMIN [Concomitant]
  4. CPAP MACHINE [Concomitant]
  5. ASPIRIN [Concomitant]
  6. LOVAZA [Concomitant]
  7. IPRATROPIUM BROMIDE [Concomitant]
  8. ALBUTEROL SULFATE [Concomitant]
  9. SPIRIVA [Concomitant]

REACTIONS (4)
  - Cardiac operation [Recovered/Resolved]
  - Proteus infection [Recovered/Resolved]
  - Post procedural infection [Recovered/Resolved]
  - Post procedural complication [Recovered/Resolved]
